FAERS Safety Report 11719446 (Version 1)
Quarter: 2015Q4

REPORT INFORMATION
  Report Type: Spontaneous
  Country: US (occurrence: None)
  Receive Date: 20151109
  Receipt Date: 20151109
  Transmission Date: 20160304
  Serious: Yes (Other)
  Sender: FDA-Public Use
  Company Number: None

PATIENT
  Age: 32 Year
  Sex: Female
  Weight: 77.11 kg

DRUGS (2)
  1. BUPROPION HCL [Suspect]
     Active Substance: BUPROPION HYDROCHLORIDE
     Indication: DEPRESSION
     Route: 048
     Dates: start: 20151106, end: 20151106
  2. LORATADINE. [Concomitant]
     Active Substance: LORATADINE

REACTIONS (5)
  - Anxiety [None]
  - Panic attack [None]
  - Insomnia [None]
  - Suicidal ideation [None]
  - Product quality issue [None]

NARRATIVE: CASE EVENT DATE: 20151106
